FAERS Safety Report 6774871-8 (Version None)
Quarter: 2010Q2

REPORT INFORMATION
  Report Type: 
  Country: None (occurrence: None)
  Receive Date: 20100617
  Receipt Date: 20100609
  Transmission Date: 20101027
  Serious: Yes (Death, Other)
  Sender: FDA-Public Use
  Company Number: BE-AMGEN-QUU417753

PATIENT
  Age: 76 Year

DRUGS (2)
  1. NPLATE [Suspect]
     Indication: DRUG USE FOR UNKNOWN INDICATION
  2. VINCRISTINE [Concomitant]

REACTIONS (5)
  - CHOLECYSTITIS [None]
  - DEATH [None]
  - PARANEOPLASTIC SYNDROME [None]
  - POLYNEUROPATHY [None]
  - SEPTIC SHOCK [None]
